FAERS Safety Report 24312749 (Version 3)
Quarter: 2025Q3

REPORT INFORMATION
  Report Type: Spontaneous
  Country: US (occurrence: US)
  Receive Date: 20240912
  Receipt Date: 20250714
  Transmission Date: 20251020
  Serious: Yes (Hospitalization)
  Sender: AMGEN
  Company Number: US-AMGEN-USASP2024178807

PATIENT
  Age: 63 Year
  Sex: Female

DRUGS (1)
  1. TEPEZZA [Suspect]
     Active Substance: TEPROTUMUMAB-TRBW
     Indication: Product used for unknown indication
     Route: 065
     Dates: start: 20220401, end: 20221101

REACTIONS (17)
  - Hip fracture [Unknown]
  - Fall [Unknown]
  - Depression [Unknown]
  - Dehydration [Unknown]
  - Anxiety [Recovering/Resolving]
  - Appetite disorder [Unknown]
  - Hair texture abnormal [Recovered/Resolved]
  - Ocular hyperaemia [Not Recovered/Not Resolved]
  - Photophobia [Unknown]
  - Lacrimation increased [Unknown]
  - Arthralgia [Recovered/Resolved]
  - Weight decreased [Unknown]
  - Taste disorder [Unknown]
  - Fatigue [Unknown]
  - Diarrhoea [Unknown]
  - Alopecia [Recovered/Resolved]
  - Onychoclasis [Recovered/Resolved]

NARRATIVE: CASE EVENT DATE: 20220101
